FAERS Safety Report 20369159 (Version 1)
Quarter: 2022Q1

REPORT INFORMATION
  Report Type: Spontaneous
  Country: US (occurrence: None)
  Receive Date: 20220121
  Receipt Date: 20220121
  Transmission Date: 20220424
  Serious: Yes (Other)
  Sender: FDA-Public Use
  Company Number: None

PATIENT
  Age: 56 Year
  Sex: Female
  Weight: 112.5 kg

DRUGS (13)
  1. SOTROVIMAB [Suspect]
     Active Substance: SOTROVIMAB
     Indication: COVID-19
     Route: 042
     Dates: start: 20220104, end: 20220104
  2. SYNTHROID [Concomitant]
     Active Substance: LEVOTHYROXINE SODIUM
  3. PROTONIX [Concomitant]
     Active Substance: PANTOPRAZOLE SODIUM
  4. PLAQUENIL [Concomitant]
     Active Substance: HYDROXYCHLOROQUINE SULFATE
  5. QUESTRAN [Concomitant]
     Active Substance: CHOLESTYRAMINE
  6. VITAMIN D [Concomitant]
     Active Substance: VITAMIN D NOS
  7. SINGULAIR [Concomitant]
     Active Substance: MONTELUKAST SODIUM
  8. ASPIRIN [Concomitant]
     Active Substance: ASPIRIN
  9. LEXAPRO [Concomitant]
     Active Substance: ESCITALOPRAM OXALATE
  10. WELLBUTRIN [Concomitant]
     Active Substance: BUPROPION HYDROCHLORIDE
  11. PLAVIX [Concomitant]
     Active Substance: CLOPIDOGREL BISULFATE
  12. ZINC [Concomitant]
     Active Substance: ZINC
  13. HERBALS [Concomitant]
     Active Substance: HERBALS

REACTIONS (8)
  - Pyrexia [None]
  - Myalgia [None]
  - Arthralgia [None]
  - Chest discomfort [None]
  - Herpes zoster [None]
  - Spinal pain [None]
  - Arthralgia [None]
  - Infusion related reaction [None]

NARRATIVE: CASE EVENT DATE: 20220104
